FAERS Safety Report 15203800 (Version 2)
Quarter: 2018Q3

REPORT INFORMATION
  Report Type: Report from Study
  Country: US (occurrence: US)
  Receive Date: 20180726
  Receipt Date: 20180928
  Transmission Date: 20181010
  Serious: Yes (Hospitalization, Other)
  Sender: FDA-Public Use
  Company Number: US-SAKK-2018SA160184AA

PATIENT
  Age: 67 Year
  Sex: Male
  Weight: 76 kg

DRUGS (12)
  1. INSULIN GLARGINE [Suspect]
     Active Substance: INSULIN GLARGINE
     Dosage: 32 UNITS IN MORNING; 32 UNITS AT NIGHT
     Route: 058
  2. INSULIN GLARGINE [Suspect]
     Active Substance: INSULIN GLARGINE
     Indication: DIABETES MELLITUS
     Dosage: 20 UNITS IN AM; 30 UNITS PM
     Route: 058
     Dates: start: 2009
  3. CLONIDINE. [Suspect]
     Active Substance: CLONIDINE
     Dosage: 0.3 MG, TID
  4. AMLODIPINE BESILATE [Suspect]
     Active Substance: AMLODIPINE BESYLATE
     Dosage: 10 MG, BID
     Route: 065
  5. MYCOPHENOLATE AN [Concomitant]
     Indication: RENAL DISORDER
     Dosage: 1?2 TIMES, QD
     Route: 065
     Dates: start: 200907
  6. HUMALOG MIX [Concomitant]
     Active Substance: INSULIN LISPRO
  7. BACTRIM [Concomitant]
     Active Substance: SULFAMETHOXAZOLE\TRIMETHOPRIM
     Indication: ANTIBIOTIC THERAPY
     Dosage: UNK UNK, QD
     Route: 065
     Dates: start: 200907
  8. CYCLOSPORINE. [Concomitant]
     Active Substance: CYCLOSPORINE
     Indication: RENAL DISORDER
     Dosage: 3 DF, BID
     Route: 065
     Dates: start: 200907
  9. INSULIN GLARGINE [Suspect]
     Active Substance: INSULIN GLARGINE
     Dosage: 46 IU, QD, NIGHT BEFORE 10 PM
     Route: 065
     Dates: start: 20090903
  10. HYDRALAZINE [Suspect]
     Active Substance: HYDRALAZINE HYDROCHLORIDE
     Dosage: 300 MG, QD
     Route: 065
  11. ISOSORBIDE MONONITRATE. [Suspect]
     Active Substance: ISOSORBIDE MONONITRATE
     Dosage: 60 MG
     Route: 065
  12. NOVOLOG [Concomitant]
     Active Substance: INSULIN ASPART

REACTIONS (19)
  - Abnormal behaviour [Recovered/Resolved]
  - Sepsis [Unknown]
  - Hyperhidrosis [Recovered/Resolved]
  - Fall [Unknown]
  - Pneumonia [Recovered/Resolved]
  - Pneumonia [Recovered/Resolved]
  - Abnormal behaviour [Not Recovered/Not Resolved]
  - Blood glucose decreased [Unknown]
  - Pneumonia [Recovered/Resolved]
  - Blood glucose decreased [Recovered/Resolved]
  - Blood pressure increased [Not Recovered/Not Resolved]
  - Movement disorder [Not Recovered/Not Resolved]
  - Infection [Unknown]
  - Body temperature increased [Unknown]
  - Pneumonia [Recovered/Resolved]
  - Loss of consciousness [Recovered/Resolved]
  - Intentional self-injury [Recovered/Resolved]
  - Speech disorder [Recovered/Resolved]
  - Blood glucose abnormal [Recovered/Resolved]

NARRATIVE: CASE EVENT DATE: 200911
